FAERS Safety Report 19432432 (Version 1)
Quarter: 2021Q2

REPORT INFORMATION
  Report Type: Report from Study
  Country: JP (occurrence: JP)
  Receive Date: 20210618
  Receipt Date: 20210618
  Transmission Date: 20210717
  Serious: Yes (Other)
  Sender: FDA-Public Use
  Company Number: JP-CELLTRION INC.-2020JP024892

PATIENT

DRUGS (43)
  1. CT?P6 [Suspect]
     Active Substance: INVESTIGATIONAL BIOSIMILARS
     Dosage: 240 MILLIGRAM, QD
     Route: 041
     Dates: start: 20200918, end: 20200918
  2. CISPLATIN. [Suspect]
     Active Substance: CISPLATIN
     Dosage: 70 MILLIGRAM, QD
     Route: 041
     Dates: start: 20200428, end: 20200428
  3. CAPECITABINE. [Suspect]
     Active Substance: CAPECITABINE
     Dosage: 3000 MILLIGRAM, QD
     Route: 048
     Dates: start: 20200519, end: 20200602
  4. EMEND [Concomitant]
     Active Substance: APREPITANT
     Indication: PROPHYLAXIS OF NAUSEA AND VOMITING
     Dosage: UNK
     Dates: start: 20200316, end: 20200828
  5. CAPECITABINE. [Suspect]
     Active Substance: CAPECITABINE
     Indication: HER2 POSITIVE GASTRIC CANCER
     Dosage: 3000 MILLIGRAM, QD
     Route: 048
     Dates: start: 20200316, end: 20200330
  6. CAPECITABINE. [Suspect]
     Active Substance: CAPECITABINE
     Dosage: 3000 MILLIGRAM, QD
     Route: 048
     Dates: start: 20200428, end: 20200512
  7. HIRUDOID [Concomitant]
     Active Substance: GLYCOSAMINOGLYCANS
     Indication: DRY SKIN PROPHYLAXIS
     Dosage: UNK
  8. CT?P6 [Suspect]
     Active Substance: INVESTIGATIONAL BIOSIMILARS
     Dosage: 315 MILLIGRAM, QD
     Route: 041
     Dates: start: 20200407, end: 20200407
  9. CT?P6 [Suspect]
     Active Substance: INVESTIGATIONAL BIOSIMILARS
     Dosage: 315 MILLIGRAM, QD
     Route: 041
     Dates: start: 20200428, end: 20200428
  10. CISPLATIN. [Suspect]
     Active Substance: CISPLATIN
     Dosage: 70 MILLIGRAM, QD
     Route: 041
     Dates: start: 20200407, end: 20200407
  11. DEXAMETHASONE. [Concomitant]
     Active Substance: DEXAMETHASONE
     Indication: PROPHYLAXIS OF NAUSEA AND VOMITING
     Dosage: UNK
     Dates: start: 20200316, end: 20200826
  12. ALFACALCIDOL [Concomitant]
     Active Substance: ALFACALCIDOL
     Indication: PROPHYLAXIS
     Dosage: UNK
  13. CT?P6 [Suspect]
     Active Substance: INVESTIGATIONAL BIOSIMILARS
     Indication: HER2 POSITIVE GASTRIC CANCER
     Dosage: 400 MG, QD
     Route: 041
     Dates: start: 20200316, end: 20200316
  14. CT?P6 [Suspect]
     Active Substance: INVESTIGATIONAL BIOSIMILARS
     Dosage: 315 MILLIGRAM, QD
     Route: 041
     Dates: start: 20200519, end: 20200519
  15. CT?P6 [Suspect]
     Active Substance: INVESTIGATIONAL BIOSIMILARS
     Dosage: 240 MILLIGRAM, QD
     Route: 041
     Dates: start: 20200728, end: 20200728
  16. CISPLATIN. [Suspect]
     Active Substance: CISPLATIN
     Dosage: 50 MILLIGRAM, QD
     Route: 041
     Dates: start: 20200826, end: 20200826
  17. CAPECITABINE. [Suspect]
     Active Substance: CAPECITABINE
     Dosage: 3000 MILLIGRAM, QD
     Route: 048
     Dates: start: 20200609, end: 20200623
  18. METHYCOBAL [Concomitant]
     Active Substance: METHYLCOBALAMIN
     Indication: NEUROPATHY PERIPHERAL
     Dosage: UNK
  19. CT?P6 [Suspect]
     Active Substance: INVESTIGATIONAL BIOSIMILARS
     Dosage: 240 MILLIGRAM, QD
     Route: 041
     Dates: start: 20200630, end: 20200630
  20. CT?P6 [Suspect]
     Active Substance: INVESTIGATIONAL BIOSIMILARS
     Dosage: 240 MILLIGRAM, QD
     Route: 041
     Dates: start: 20201009, end: 20201009
  21. CISPLATIN. [Suspect]
     Active Substance: CISPLATIN
     Dosage: 70 MILLIGRAM, QD
     Route: 041
     Dates: start: 20200609, end: 20200609
  22. CAPECITABINE. [Suspect]
     Active Substance: CAPECITABINE
     Dosage: 2400 MILLIGRAM, QD
     Route: 048
     Dates: start: 20200918, end: 20201002
  23. MINODRONIC ACID HYDRATE [Concomitant]
     Active Substance: MINODRONIC ACID
     Indication: PROPHYLAXIS
     Dosage: UNK
  24. DIQUAS [Concomitant]
     Active Substance: DIQUAFOSOL TETRASODIUM
     Indication: DRY EYE
     Dosage: UNK
  25. MUCOSTA [Concomitant]
     Active Substance: REBAMIPIDE
     Indication: DRY EYE
     Dosage: UNK
  26. CT?P6 [Suspect]
     Active Substance: INVESTIGATIONAL BIOSIMILARS
     Dosage: 300 MILLIGRAM, QD
     Route: 041
     Dates: start: 20200609, end: 20200609
  27. CISPLATIN. [Suspect]
     Active Substance: CISPLATIN
     Indication: HER2 POSITIVE GASTRIC CANCER
     Dosage: 70 MILLIGRAM, QD
     Route: 041
     Dates: start: 20200316, end: 20200316
  28. CISPLATIN. [Suspect]
     Active Substance: CISPLATIN
     Dosage: 60 MILLIGRAM, QD
     Route: 041
     Dates: start: 20200630, end: 20200630
  29. CAPECITABINE. [Suspect]
     Active Substance: CAPECITABINE
     Dosage: 3000 MILLIGRAM, QD
     Route: 048
     Dates: start: 20200407, end: 20200421
  30. CAPECITABINE. [Suspect]
     Active Substance: CAPECITABINE
     Dosage: 2400 MILLIGRAM, QD
     Route: 048
     Dates: start: 20200630, end: 20200714
  31. CAPECITABINE. [Suspect]
     Active Substance: CAPECITABINE
     Dosage: 2400 MILLIGRAM, QD
     Route: 048
     Dates: start: 20201009, end: 20201023
  32. MANNITOL. [Concomitant]
     Active Substance: MANNITOL
     Indication: NEPHROPROTECTIVE THERAPY
     Dosage: UNK
     Dates: start: 20200316, end: 20200826
  33. DECADRON [Concomitant]
     Active Substance: DEXAMETHASONE
     Indication: PROPHYLAXIS OF NAUSEA AND VOMITING
     Dosage: UNK
     Dates: start: 20200317, end: 20200829
  34. DAIKENCHUTO [Concomitant]
     Active Substance: HERBALS
     Indication: PROPHYLAXIS
     Dosage: UNK
  35. FERROUS CITRATE NA [Concomitant]
     Active Substance: SODIUM FERROUS CITRATE
     Indication: ANAEMIA
     Dosage: UNK
  36. CT?P6 [Suspect]
     Active Substance: INVESTIGATIONAL BIOSIMILARS
     Dosage: 240 MILLIGRAM, QD
     Route: 041
     Dates: start: 20200826, end: 20200826
  37. CISPLATIN. [Suspect]
     Active Substance: CISPLATIN
     Dosage: 70 MILLIGRAM, QD
     Route: 041
     Dates: start: 20200519, end: 20200519
  38. CISPLATIN. [Suspect]
     Active Substance: CISPLATIN
     Dosage: 60 MILLIGRAM, QD
     Route: 041
     Dates: start: 20200728, end: 20200728
  39. CAPECITABINE. [Suspect]
     Active Substance: CAPECITABINE
     Dosage: 2400 MILLIGRAM, QD
     Route: 048
     Dates: start: 20200728, end: 20200811
  40. CAPECITABINE. [Suspect]
     Active Substance: CAPECITABINE
     Dosage: 2400 MILLIGRAM, QD
     Route: 048
     Dates: start: 20200826, end: 20200909
  41. GRANISETRON [Concomitant]
     Active Substance: GRANISETRON
     Indication: PROPHYLAXIS OF NAUSEA AND VOMITING
     Dosage: UNK
     Dates: start: 20200316, end: 20200826
  42. CYMBALTA [Concomitant]
     Active Substance: DULOXETINE HYDROCHLORIDE
     Indication: HYPERTENSION
     Dosage: UNK
  43. LAC?B [Concomitant]
     Active Substance: BIFIDOBACTERIUM SPP.
     Indication: PROPHYLAXIS
     Dosage: UNK

REACTIONS (12)
  - Gastrooesophageal reflux disease [Recovered/Resolved]
  - Palmar-plantar erythrodysaesthesia syndrome [Recovering/Resolving]
  - Underdose [Unknown]
  - Blood creatine phosphokinase increased [Recovered/Resolved]
  - Product use issue [Unknown]
  - Blood creatinine increased [Recovered/Resolved]
  - Hypoalbuminaemia [Recovered/Resolved]
  - White blood cell count decreased [Recovered/Resolved]
  - Neutrophil count decreased [Recovered/Resolved]
  - Off label use [Unknown]
  - Hyperkalaemia [Recovered/Resolved]
  - Weight decreased [Recovering/Resolving]

NARRATIVE: CASE EVENT DATE: 20200316
